FAERS Safety Report 26089551 (Version 2)
Quarter: 2025Q4

REPORT INFORMATION
  Report Type: Other
  Country: EU (occurrence: EU)
  Receive Date: 20251125
  Receipt Date: 20251202
  Transmission Date: 20260117
  Serious: Yes (Hospitalization, Other)
  Sender: SERVIER
  Company Number: None

PATIENT

DRUGS (8)
  1. PEGASPARGASE [Suspect]
     Active Substance: PEGASPARGASE
     Indication: B-cell type acute leukaemia
     Dosage: CONSOLIDATION CHEMOTHERAPY: D3, 17
     Route: 065
  2. RITUXIMAB [Suspect]
     Active Substance: RITUXIMAB
     Indication: B-cell type acute leukaemia
     Dosage: INDUCTION PHASE I: D6, INDUCTION PHASE II: D20; CONSOLIDATION CHEMOTHERAPY: D1
     Route: 065
  3. CYCLOPHOSPHAMIDE [Suspect]
     Active Substance: CYCLOPHOSPHAMIDE
     Indication: B-cell type acute leukaemia
     Dosage: PRE-PHASE THERAPY: D3-5, INDUCTION PHASE II: D21, 35
     Route: 065
  4. CYTARABINE [Suspect]
     Active Substance: CYTARABINE
     Indication: B-cell type acute leukaemia
     Dosage: INDUCTION PHASE II: D22-25, 29-32
     Route: 037
  5. VINCRISTINE [Suspect]
     Active Substance: VINCRISTINE
     Indication: B-cell type acute leukaemia
     Dosage: INDUCTION PHASE I: D7, 14
     Route: 065
  6. IDARUBICIN [Suspect]
     Active Substance: IDARUBICIN
     Indication: B-cell type acute leukaemia
     Dosage: INDUCTION PHASE I: D7, 8, 14, 15
     Route: 037
  7. DEXAMETHASONE [Suspect]
     Active Substance: DEXAMETHASONE
     Indication: B-cell type acute leukaemia
     Dosage: INDUCTION PHASE I: D13, INDUCTION PHASE II: D21, 28, 35
     Route: 037
  8. METHOTREXATE [Suspect]
     Active Substance: METHOTREXATE
     Indication: B-cell type acute leukaemia
     Dosage: CONSOLIDATION CHEMOTHERAPY: HDMTX D2, 16
     Route: 037

REACTIONS (15)
  - Septic encephalopathy [Unknown]
  - Sepsis [Unknown]
  - Haematological infection [Unknown]
  - Pneumonia [Unknown]
  - Rash [Unknown]
  - Septic shock [Unknown]
  - Anaphylactic reaction [Unknown]
  - Anaemia [Unknown]
  - Thrombocytopenia [Unknown]
  - Subdural haematoma [Unknown]
  - Seizure [Unknown]
  - Hyperbilirubinaemia [Unknown]
  - Lipase increased [Unknown]
  - Antithrombin III deficiency [Unknown]
  - Supraventricular tachycardia [Unknown]
